FAERS Safety Report 4761926-2 (Version None)
Quarter: 2005Q3

REPORT INFORMATION
  Report Type: 
  Country: None (occurrence: None)
  Receive Date: 20050831
  Receipt Date: 20050718
  Transmission Date: 20060218
  Serious: Yes (Life-Threatening)
  Sender: FDA-Public Use
  Company Number: 245141

PATIENT
  Age: 75 Year
  Sex: Male
  Weight: 103.4 kg

DRUGS (6)
  1. NOVOLOG MIX 70/30 [Suspect]
     Indication: INSULIN-REQUIRING TYPE II DIABETES MELLITUS
     Dosage: 20 IU, BID, SUBCUTAN.-PUMP
     Route: 058
     Dates: start: 20041201
  2. POTASSIUM CHLORIDE [Concomitant]
  3. DILTAHEXAL (DILTIAZEM HYDROCHLORIDE) [Concomitant]
  4. TOPROL-XL [Concomitant]
  5. ENALAPRIL MALEATE [Concomitant]
  6. VYTORIN (SIMVASTATIN, EZETIMIBE) [Concomitant]

REACTIONS (1)
  - HYPOGLYCAEMIC COMA [None]
